FAERS Safety Report 9220754 (Version 1)
Quarter: 2013Q2

REPORT INFORMATION
  Report Type: Spontaneous
  Country: FR (occurrence: FR)
  Receive Date: 20130409
  Receipt Date: 20130409
  Transmission Date: 20140414
  Serious: Yes (Hospitalization, Other)
  Sender: FDA-Public Use
  Company Number: FR-PFIZER INC-2013104978

PATIENT
  Age: 5 Year
  Sex: Male

DRUGS (9)
  1. ARACYTINE [Suspect]
     Indication: T-CELL TYPE ACUTE LEUKAEMIA
     Dosage: CONSOLIDATION PHASE
     Route: 037
     Dates: start: 20120531
  2. ARACYTINE [Suspect]
     Dosage: FIRST INTENSIFICATION PHASE
     Route: 037
     Dates: start: 20120815
  3. ARACYTINE [Suspect]
     Dosage: SECOND INTENSIFICATION PHASE
     Route: 037
     Dates: start: 20130105
  4. ARACYTINE [Suspect]
     Dosage: 30 MG/M2, 2X/DAY, TOTAL OF 12 INJECTIONS (SECOND PART OF SECOND INTENSIFICATION)
     Route: 058
     Dates: start: 20130207, end: 20130221
  5. TIOGUANINE [Suspect]
     Indication: T-CELL TYPE ACUTE LEUKAEMIA
     Dosage: CONSOLIDATION PHASE
     Dates: start: 20120531
  6. TIOGUANINE [Suspect]
     Dosage: FIRST INTENSIFICATION PHASE
     Dates: start: 20120815
  7. TIOGUANINE [Suspect]
     Dosage: 60 MG/M2, 1X/DAY
     Route: 048
     Dates: start: 20130207, end: 20130223
  8. ENDOXAN [Suspect]
     Indication: T-CELL TYPE ACUTE LEUKAEMIA
     Dosage: 1000 MG/M2 (CONSOLIDATION PHASE)
     Dates: start: 20120531
  9. ENDOXAN [Suspect]
     Dosage: 1000 MG/M2, SINGLE
     Route: 042
     Dates: start: 20130207, end: 20130207

REACTIONS (7)
  - Venoocclusive disease [Recovering/Resolving]
  - Thrombocytopenia [Recovering/Resolving]
  - Gastrointestinal disorder [Unknown]
  - Ascites [Unknown]
  - Neovascularisation [Unknown]
  - Leukopenia [Unknown]
  - Neutropenia [Unknown]
